FAERS Safety Report 25663581 (Version 1)
Quarter: 2025Q3

REPORT INFORMATION
  Report Type: Spontaneous
  Country: JP (occurrence: JP)
  Receive Date: 20250811
  Receipt Date: 20250811
  Transmission Date: 20251020
  Serious: Yes (Other)
  Sender: AMGEN
  Company Number: JP-AMGEN-JPNSP2025156346

PATIENT

DRUGS (2)
  1. ETANERCEPT [Suspect]
     Active Substance: ETANERCEPT
     Indication: Rheumatoid arthritis
     Route: 065
  2. METHOTREXATE SODIUM [Concomitant]
     Active Substance: METHOTREXATE SODIUM

REACTIONS (18)
  - Neoplasm malignant [Unknown]
  - Lung neoplasm malignant [Unknown]
  - Lymphoma [Unknown]
  - Colorectal cancer [Unknown]
  - Gastric cancer [Unknown]
  - Breast cancer [Unknown]
  - Prostate cancer [Unknown]
  - Skin cancer [Unknown]
  - Pancreatic carcinoma [Unknown]
  - Renal cancer [Unknown]
  - Bladder cancer [Unknown]
  - Cervix carcinoma [Unknown]
  - Gallbladder cancer [Unknown]
  - Oropharyngeal cancer [Unknown]
  - Ovarian cancer [Unknown]
  - Uterine cancer [Unknown]
  - Thyroid cancer [Unknown]
  - Hepatic cancer [Unknown]
